FAERS Safety Report 4709080-7 (Version None)
Quarter: 2005Q3

REPORT INFORMATION
  Report Type: 
  Country: None (occurrence: None)
  Receive Date: 20050707
  Receipt Date: 20050707
  Transmission Date: 20060218
  Serious: No
  Sender: FDA-Public Use
  Company Number: None

PATIENT

DRUGS (5)
  1. SANDOSTATIN [Suspect]
     Dates: start: 20050610, end: 20050705
  2. SANDOSTATIN [Suspect]
  3. SANDOSTATIN [Suspect]
  4. SANDOSTATIN [Suspect]
  5. SANDOSTATIN [Suspect]

REACTIONS (2)
  - MEDICATION ERROR [None]
  - PHARMACEUTICAL PRODUCT COMPLAINT [None]
